FAERS Safety Report 18750307 (Version 5)
Quarter: 2022Q2

REPORT INFORMATION
  Report Type: Spontaneous
  Country: FI (occurrence: FI)
  Receive Date: 20210118
  Receipt Date: 20220627
  Transmission Date: 20220721
  Serious: Yes (Other)
  Sender: FDA-Public Use
  Company Number: FI-SA-SAC20210114000363

PATIENT
  Age: 52 Year
  Sex: Female

DRUGS (7)
  1. DUPIXENT [Suspect]
     Active Substance: DUPILUMAB
     Indication: Dermatitis atopic
     Dosage: 600 MG, 1X
     Route: 058
     Dates: start: 20200507, end: 20200507
  2. DUPIXENT [Suspect]
     Active Substance: DUPILUMAB
     Indication: Asthma
     Dosage: 300 MG, QOW
     Route: 058
     Dates: start: 202005, end: 20210203
  3. OLUMIANT [Concomitant]
     Active Substance: BARICITINIB
     Dosage: UNK
  4. PREGABALIN [Concomitant]
     Active Substance: PREGABALIN
     Dosage: 75 MG, BID
  5. DOXEPIN [Concomitant]
     Active Substance: DOXEPIN
  6. CLONAZEPAM [Concomitant]
     Active Substance: CLONAZEPAM
     Dosage: 0.5 MG, PRN; 1-3 TABLETS
  7. SERTRALINE [Concomitant]
     Active Substance: SERTRALINE HYDROCHLORIDE
     Dosage: UNK

REACTIONS (8)
  - Sarcoidosis of lymph node [Recovering/Resolving]
  - Lysozyme increased [Recovering/Resolving]
  - Infection [Unknown]
  - Pyrexia [Unknown]
  - Abdominal pain [Unknown]
  - Diarrhoea [Unknown]
  - Mucous stools [Unknown]
  - Mental disorder [Unknown]

NARRATIVE: CASE EVENT DATE: 20200101
